FAERS Safety Report 24029954 (Version 1)
Quarter: 2024Q2

REPORT INFORMATION
  Report Type: Spontaneous
  Country: US (occurrence: US)
  Receive Date: 20240628
  Receipt Date: 20240628
  Transmission Date: 20240716
  Serious: No
  Sender: FDA-Public Use
  Company Number: US-SANDOZ-SDZ2023US044708

PATIENT
  Sex: Female

DRUGS (2)
  1. ALBUTEROL SULFATE [Suspect]
     Active Substance: ALBUTEROL SULFATE
     Dosage: TWO INHALATIONS BY MOUTH, EVERY FOUR HOURS AS NEEDED.
     Route: 055
  2. ALBUTEROL SULFATE [Suspect]
     Active Substance: ALBUTEROL SULFATE
     Indication: Lung neoplasm malignant
     Dosage: TWO INHALATIONS BY MOUTH, EVERY FOUR HOURS AS NEEDED.
     Route: 055

REACTIONS (2)
  - Off label use [Unknown]
  - Device delivery system issue [Unknown]
